FAERS Safety Report 22972820 (Version 2)
Quarter: 2023Q4

REPORT INFORMATION
  Report Type: Spontaneous
  Country: ZA (occurrence: ZA)
  Receive Date: 20230922
  Receipt Date: 20231104
  Transmission Date: 20240110
  Serious: Yes (Other)
  Sender: FDA-Public Use
  Company Number: ZA-002147023-NVSC2023ZA200666

PATIENT
  Age: 48 Year
  Sex: Female

DRUGS (2)
  1. ZYKADIA [Suspect]
     Active Substance: CERITINIB
     Indication: Non-small cell lung cancer
     Dosage: 450 MG, QD
     Route: 048
     Dates: start: 20230805, end: 20230828
  2. ZYKADIA [Suspect]
     Active Substance: CERITINIB
     Dosage: UNK (STARTED END OF SEP)
     Route: 048
     Dates: start: 202309

REACTIONS (6)
  - Dermatitis exfoliative generalised [Recovering/Resolving]
  - Oedema peripheral [Recovering/Resolving]
  - Skin reaction [Recovering/Resolving]
  - Pruritus [Not Recovered/Not Resolved]
  - Rash papular [Recovering/Resolving]
  - Liver function test abnormal [Recovered/Resolved]

NARRATIVE: CASE EVENT DATE: 20230822
